FAERS Safety Report 9880976 (Version 1)
Quarter: 2014Q1

REPORT INFORMATION
  Report Type: Spontaneous
  Country: US (occurrence: None)
  Receive Date: 20140206
  Receipt Date: 20140206
  Transmission Date: 20141002
  Serious: Yes (Other)
  Sender: FDA-Public Use
  Company Number: None

PATIENT
  Age: 42 Year
  Sex: Male

DRUGS (1)
  1. IMBRUVICA [Suspect]
     Indication: NEOPLASM MALIGNANT
     Route: 048
     Dates: start: 20140114

REACTIONS (3)
  - Rash [None]
  - Arthralgia [None]
  - Haematuria [None]
